FAERS Safety Report 6499863-8 (Version None)
Quarter: 2009Q4

REPORT INFORMATION
  Report Type: 
  Country: None (occurrence: None)
  Receive Date: 20091214
  Receipt Date: 20091214
  Transmission Date: 20100525
  Serious: Yes (Other)
  Sender: FDA-Public Use
  Company Number: None

PATIENT
  Sex: Female
  Weight: 87.0906 kg

DRUGS (2)
  1. LYRICA [Suspect]
     Indication: FIBROMYALGIA
     Dosage: 1 CAPSULE BEFORE BEDTIME PO
     Route: 048
     Dates: start: 20081107, end: 20090417
  2. LYRICA [Suspect]
     Indication: FIBROMYALGIA
     Dosage: 1CAPSULE 9AM AND 12PM PO
     Route: 048
     Dates: start: 20081107, end: 20090417

REACTIONS (3)
  - DYSKINESIA [None]
  - FALL [None]
  - LUMBAR VERTEBRAL FRACTURE [None]
